FAERS Safety Report 7081198-6 (Version None)
Quarter: 2010Q4

REPORT INFORMATION
  Report Type: 
  Country: None (occurrence: None)
  Receive Date: 20101103
  Receipt Date: 20101021
  Transmission Date: 20110411
  Serious: Yes (Hospitalization)
  Sender: FDA-Public Use
  Company Number: DE-ROCHE-736101

PATIENT
  Sex: Female
  Weight: 70 kg

DRUGS (7)
  1. BEVACIZUMAB [Suspect]
     Dosage: DAY 1 AND 15 OF A CYCLE
     Route: 042
     Dates: start: 20100211
  2. BEVACIZUMAB [Suspect]
     Dosage: DAY 1 AND 15 OF A CYCLE
     Route: 042
     Dates: end: 20100906
  3. ZOLEDRONATE [Suspect]
     Route: 042
     Dates: start: 20090626
  4. ZOLEDRONATE [Suspect]
     Route: 042
     Dates: end: 20100920
  5. PACLITAXEL [Concomitant]
     Dosage: DAY 1, 8, 15 OF A CYCLE
     Route: 042
     Dates: start: 20100211, end: 20100906
  6. METOPROLOL [Concomitant]
  7. RAMIPRIL [Concomitant]

REACTIONS (1)
  - OSTEONECROSIS OF JAW [None]
